FAERS Safety Report 8001177-1 (Version None)
Quarter: 2011Q4

REPORT INFORMATION
  Report Type: 
  Country: None (occurrence: None)
  Receive Date: 20111220
  Receipt Date: 20111213
  Transmission Date: 20120403
  Serious: Yes (Death, Life-Threatening, Hospitalization)
  Sender: FDA-Public Use
  Company Number: 2011SP058154

PATIENT
  Age: 24 Year
  Sex: Female

DRUGS (1)
  1. NUVARING [Suspect]
     Indication: CONTRACEPTION

REACTIONS (4)
  - PULMONARY EMBOLISM [None]
  - CARDIO-RESPIRATORY ARREST [None]
  - MYOCARDIAL INFARCTION [None]
  - SCREAMING [None]
